FAERS Safety Report 18203322 (Version 2)
Quarter: 2020Q3

REPORT INFORMATION
  Report Type: Spontaneous
  Country: US (occurrence: US)
  Receive Date: 20200827
  Receipt Date: 20200928
  Transmission Date: 20201103
  Serious: Yes (Death, Other)
  Sender: FDA-Public Use
  Company Number: US-UPSHER-SMITH LABORATORIES, LLC-2020USL00460

PATIENT
  Age: 1 Year
  Sex: Male
  Weight: 5.84 kg

DRUGS (29)
  1. VIGABATRIN. [Suspect]
     Active Substance: VIGABATRIN
     Indication: INFANTILE SPASMS
     Dosage: 350 MG, 1X/DAY (MORNING)
     Route: 048
     Dates: start: 201911
  2. TOPIRAMATE. [Concomitant]
     Active Substance: TOPIRAMATE
     Dosage: 36 MG, 3X/DAY
     Route: 048
  3. DIAZEPAM. [Concomitant]
     Active Substance: DIAZEPAM
     Dosage: 2.5 MG, AS NEEDED
     Route: 054
  4. CLONIDINE. [Concomitant]
     Active Substance: CLONIDINE
  5. LORAZEPAM. [Concomitant]
     Active Substance: LORAZEPAM
  6. VITAMIN B?6 [Concomitant]
     Active Substance: PYRIDOXINE
     Dosage: 12.5 MG, 1X/DAY
     Route: 048
  7. VIGABATRIN. [Suspect]
     Active Substance: VIGABATRIN
     Dosage: 500 MG, 1X/DAY (EVENING)
     Route: 048
     Dates: start: 201911
  8. EPANED [Concomitant]
     Active Substance: ENALAPRIL MALEATE
     Dosage: 0.6 MG, 2X/DAY
     Route: 048
  9. CLONAZEPAM. [Concomitant]
     Active Substance: CLONAZEPAM
     Dosage: 0.25 MG, AS NEEDED
  10. OMEPRAZOLE. [Concomitant]
     Active Substance: OMEPRAZOLE
     Dosage: 6 MG, 2X/DAY
     Route: 048
  11. LACTULOSE. [Concomitant]
     Active Substance: LACTULOSE
     Dosage: 0.67 G, 2X/DAY
     Route: 048
  12. GABAPENTIN. [Concomitant]
     Active Substance: GABAPENTIN
     Dosage: 25?50 MG, 3X/DAY
     Route: 048
     Dates: start: 202003
  13. GLYCOPYRROLATE. [Concomitant]
     Active Substance: GLYCOPYRROLATE
  14. LEVETIRACETAM. [Concomitant]
     Active Substance: LEVETIRACETAM
     Dosage: 60 MG, 2X/DAY
     Route: 048
  15. LACTULOSE. [Concomitant]
     Active Substance: LACTULOSE
     Dosage: 0.67 G, 2X/DAY
     Route: 048
     Dates: start: 202003
  16. SYNAGIS [Concomitant]
     Active Substance: PALIVIZUMAB
  17. BOSENTAN. [Concomitant]
     Active Substance: BOSENTAN
     Dosage: 8 MG, 2X/DAY
     Route: 048
  18. ONDANSETRON [Concomitant]
     Active Substance: ONDANSETRON
     Dosage: 2 MG, UP TO 3X/DAY AS NEEDED
     Route: 048
     Dates: start: 202003
  19. CYPROHEPTADINE. [Concomitant]
     Active Substance: CYPROHEPTADINE
     Dosage: UNK
     Dates: end: 202003
  20. FERROUS SULFATE. [Concomitant]
     Active Substance: FERROUS SULFATE
     Dosage: UNK
     Dates: end: 202003
  21. PEPCID [Concomitant]
     Active Substance: FAMOTIDINE
  22. GLYCERIN. [Concomitant]
     Active Substance: GLYCERIN
     Dosage: UNK, AS NEEDED
  23. KATERZIA [Concomitant]
     Active Substance: AMLODIPINE BENZOATE
     Dosage: 0.75 MG, 1X/DAY
     Route: 048
  24. SILDENAFIL. [Concomitant]
     Active Substance: SILDENAFIL
     Dosage: 9 MG, 4X/DAY (EVERY 6 HOURS)
     Route: 048
  25. POLY?VI?SOL [Concomitant]
     Active Substance: VITAMINS
     Dosage: UNK
     Dates: end: 202003
  26. DIGOXIN. [Concomitant]
     Active Substance: DIGOXIN
     Dosage: 15 ?G, 2X/DAY
     Route: 048
     Dates: start: 202003
  27. MORPHINE [Concomitant]
     Active Substance: MORPHINE
  28. RANITIDINE. [Concomitant]
     Active Substance: RANITIDINE
     Dosage: 7.5 MG, 2X/DAY
     Route: 048
  29. CARNITOR [Concomitant]
     Active Substance: LEVOCARNITINE
     Dosage: 37.5 MG, 4X/DAY
     Route: 048

REACTIONS (8)
  - Urinary retention [Unknown]
  - Left ventricular failure [Fatal]
  - Malnutrition [Not Recovered/Not Resolved]
  - Autonomic nervous system imbalance [Unknown]
  - Neurological symptom [Unknown]
  - Urinary tract infection [Recovered/Resolved]
  - Pulmonary hypertension [Fatal]
  - Ventricular extrasystoles [Unknown]

NARRATIVE: CASE EVENT DATE: 2020
